FAERS Safety Report 5601103-6 (Version None)
Quarter: 2008Q1

REPORT INFORMATION
  Report Type: 
  Country: None (occurrence: None)
  Receive Date: 20080124
  Receipt Date: 20080110
  Transmission Date: 20080703
  Serious: Yes (Life-Threatening, Other)
  Sender: FDA-Public Use
  Company Number: IT-AMGEN-US257126

PATIENT
  Sex: Female

DRUGS (4)
  1. ENBREL [Suspect]
     Indication: RHEUMATOID ARTHRITIS
     Dosage: LYOPHILIZED 50MG WEEKLY
     Route: 058
     Dates: start: 20050101, end: 20070101
  2. ENBREL [Suspect]
     Dosage: PRE-FILLED SYRINGE 50MG WEEKLY
     Route: 058
     Dates: start: 20070101, end: 20071213
  3. MEDROL [Concomitant]
     Dosage: NOT REPORTED
     Route: 065
     Dates: start: 20050101
  4. INDOXEN [Concomitant]
     Route: 065

REACTIONS (3)
  - DROP ATTACKS [None]
  - MUSCULAR WEAKNESS [None]
  - PARAESTHESIA [None]
